FAERS Safety Report 5507302-6 (Version None)
Quarter: 2007Q4

REPORT INFORMATION
  Report Type: 
  Country: None (occurrence: None)
  Receive Date: 20071102
  Receipt Date: 20071022
  Transmission Date: 20080405
  Serious: Yes (Hospitalization, Other)
  Sender: FDA-Public Use
  Company Number: 2007SP021335

PATIENT
  Age: 48 Year
  Sex: Female

DRUGS (2)
  1. INTRON A [Suspect]
     Indication: MALIGNANT MELANOMA
     Dosage: TIW; TIW
     Dates: end: 20071001
  2. INTRON A [Suspect]
     Indication: MALIGNANT MELANOMA
     Dosage: TIW; TIW
     Dates: start: 20070219

REACTIONS (3)
  - PAIN IN EXTREMITY [None]
  - PSYCHOTIC DISORDER [None]
  - SYNOVIAL CYST [None]
